FAERS Safety Report 8218870-8 (Version None)
Quarter: 2012Q1

REPORT INFORMATION
  Report Type: 
  Country: None (occurrence: None)
  Receive Date: 20120319
  Receipt Date: 20120313
  Transmission Date: 20120608
  Serious: Yes (Death)
  Sender: FDA-Public Use
  Company Number: ES-SANOFI-AVENTIS-2010SA056179

PATIENT
  Age: 69 Year
  Sex: Female

DRUGS (10)
  1. NOLOTIL [Suspect]
     Route: 065
     Dates: start: 20091001, end: 20100101
  2. OMACOR [Suspect]
     Route: 048
     Dates: start: 20100101, end: 20100714
  3. ANALGILASA [Suspect]
     Route: 048
     Dates: start: 20091101, end: 20100714
  4. FUROSEMIDE [Suspect]
     Route: 048
     Dates: start: 20100101, end: 20100711
  5. OMEPRAZOLE [Suspect]
     Route: 048
     Dates: start: 20100601, end: 20100714
  6. OMEPRAZOLE [Suspect]
     Indication: GASTRIC ULCER
     Route: 048
     Dates: start: 20091101, end: 20100601
  7. TELMISARTAN AND HYDROCHLOROTHIAZIDE [Suspect]
     Indication: HYPERTENSION
     Route: 048
     Dates: start: 20100301, end: 20100714
  8. VOLTAREN [Suspect]
     Route: 048
     Dates: start: 20090101, end: 20100101
  9. ACETAMINOPHEN [Suspect]
     Route: 048
     Dates: start: 20100101, end: 20100714
  10. ALLOPURINOL [Suspect]
     Indication: HYPERURICAEMIA
     Route: 048
     Dates: start: 20100301, end: 20100714

REACTIONS (13)
  - HYPERTENSION [None]
  - URINE OUTPUT DECREASED [None]
  - PETECHIAE [None]
  - APLASTIC ANAEMIA [None]
  - HYPERURICAEMIA [None]
  - PLEURAL EFFUSION [None]
  - ASTHENIA [None]
  - BRONCHOSPASM [None]
  - MULTI-ORGAN FAILURE [None]
  - CHEST PAIN [None]
  - RESPIRATORY FAILURE [None]
  - HYPOTENSION [None]
  - BRONCHOPULMONARY ASPERGILLOSIS [None]
